FAERS Safety Report 8996320 (Version 3)
Quarter: 2013Q1

REPORT INFORMATION
  Report Type: Report from Study
  Country: AU (occurrence: AU)
  Receive Date: 20130104
  Receipt Date: 20130125
  Transmission Date: 20140127
  Serious: Yes (Hospitalization, Other)
  Sender: FDA-Public Use
  Company Number: AU-ROCHE-1161642

PATIENT
  Age: 59 Year
  Sex: Male
  Weight: 70 kg

DRUGS (10)
  1. ACTEMRA [Suspect]
     Indication: RHEUMATOID ARTHRITIS
     Route: 042
     Dates: start: 20120720
  2. ACTEMRA [Suspect]
     Route: 042
     Dates: start: 20121117
  3. ACTEMRA [Suspect]
     Route: 042
     Dates: start: 20121217
  4. PREDNISOLONE [Concomitant]
     Indication: RHEUMATOID ARTHRITIS
     Route: 048
  5. PREDNISOLONE [Concomitant]
     Dosage: 2 YEARS AGO STARTED
     Route: 048
  6. MORPHINE [Concomitant]
     Indication: ANALGESIC THERAPY
     Route: 048
  7. MORPHINE [Concomitant]
     Dosage: 3 MONTHS AGO STARTED
     Route: 048
  8. ARAVA [Concomitant]
     Indication: RHEUMATOID ARTHRITIS
     Dosage: 1 AND HALF YEARS AGO STARTED
     Route: 048
  9. NEXIUM [Concomitant]
     Indication: GASTRIC HAEMORRHAGE
     Route: 048
  10. ENDEP [Concomitant]
     Route: 065

REACTIONS (6)
  - Chest pain [Unknown]
  - Myocardial infarction [Unknown]
  - Pain in jaw [Unknown]
  - Neck pain [Unknown]
  - Dyspnoea [Unknown]
  - Chest pain [Recovered/Resolved]
